FAERS Safety Report 19959158 (Version 1)
Quarter: 2021Q4

REPORT INFORMATION
  Report Type: Report from Study
  Country: US (occurrence: US)
  Receive Date: 20211015
  Receipt Date: 20211015
  Transmission Date: 20220303
  Serious: Yes (Other)
  Sender: FDA-Public Use
  Company Number: 2021A769910

PATIENT
  Age: 19029 Day
  Sex: Male

DRUGS (1)
  1. BRILINTA [Suspect]
     Active Substance: TICAGRELOR
     Indication: Anticoagulant therapy
     Route: 048
     Dates: start: 20211001

REACTIONS (3)
  - Dyspnoea [Unknown]
  - Hot flush [Unknown]
  - Medication error [Unknown]

NARRATIVE: CASE EVENT DATE: 20211001
